FAERS Safety Report 7491170-X (Version None)
Quarter: 2011Q2

REPORT INFORMATION
  Report Type: 
  Country: None (occurrence: None)
  Receive Date: 20110519
  Receipt Date: 20110516
  Transmission Date: 20111010
  Serious: Yes (Other)
  Sender: FDA-Public Use
  Company Number: JP-PFIZER INC-2011104976

PATIENT
  Age: 89 Year
  Sex: Male

DRUGS (6)
  1. GANATON [Concomitant]
     Dosage: UNK
     Route: 048
  2. TOLTERODINE TARTRATE [Suspect]
     Dosage: 4 MG/DAY
     Route: 048
  3. MICARDIS [Concomitant]
     Dosage: UNK
     Route: 048
  4. CRESTOR [Concomitant]
     Dosage: UNK
     Route: 048
  5. PLAVIX [Concomitant]
     Dosage: UNK
     Route: 048
  6. CEREKINON [Concomitant]
     Dosage: UNK
     Route: 048

REACTIONS (2)
  - ROAD TRAFFIC ACCIDENT [None]
  - XEROPHTHALMIA [None]
